FAERS Safety Report 21608771 (Version 1)
Quarter: 2022Q4

REPORT INFORMATION
  Report Type: Spontaneous
  Country: US (occurrence: None)
  Receive Date: 20221116
  Receipt Date: 20221116
  Transmission Date: 20230113
  Serious: Yes (Other)
  Sender: FDA-Public Use
  Company Number: None

PATIENT
  Age: 49 Year
  Sex: Male
  Weight: 89.2 kg

DRUGS (1)
  1. BELATACEPT [Suspect]
     Active Substance: BELATACEPT
     Indication: Renal transplant
     Dosage: FREQUENCY : MONTHLY;?
     Route: 042

REACTIONS (5)
  - Cerebrovascular accident [None]
  - Hypertension [None]
  - Pyrexia [None]
  - Blood lactic acid increased [None]
  - International normalised ratio increased [None]

NARRATIVE: CASE EVENT DATE: 20221114
